FAERS Safety Report 9739174 (Version 1)
Quarter: 2013Q4

REPORT INFORMATION
  Report Type: Spontaneous
  Country: US (occurrence: US)
  Receive Date: 20131209
  Receipt Date: 20131209
  Transmission Date: 20140711
  Serious: Yes (Hospitalization)
  Sender: FDA-Public Use
  Company Number: US-TARO PHARMACEUTICALS U.S.A., INC-2013SUN05100

PATIENT
  Age: 52 Year
  Sex: Female

DRUGS (6)
  1. CARBAMAZEPINE [Suspect]
     Indication: PRODUCT USED FOR UNKNOWN INDICATION
     Dosage: 700 MG, UNK
     Route: 065
  2. FLUOXETINE [Concomitant]
     Dosage: 20 MG OR 30 MG
     Route: 065
  3. ARIPIPRAZOLE [Concomitant]
     Dosage: 36 MG, UNK
     Route: 065
  4. DIAZEPAM [Concomitant]
     Dosage: 60 MG, UNK
  5. TRAZODONE [Concomitant]
     Dosage: 2400 MG, UNK
  6. ROPINIROLE [Concomitant]

REACTIONS (5)
  - Torsade de pointes [Recovered/Resolved]
  - Coma [Recovered/Resolved]
  - Hypopnoea [Recovered/Resolved]
  - Ventricular arrhythmia [Recovered/Resolved]
  - Grand mal convulsion [Recovered/Resolved]
